FAERS Safety Report 25698739 (Version 1)
Quarter: 2025Q3

REPORT INFORMATION
  Report Type: Spontaneous
  Country: CN (occurrence: CN)
  Receive Date: 20250819
  Receipt Date: 20250819
  Transmission Date: 20251020
  Serious: Yes (Hospitalization, Other)
  Sender: ACCORD
  Company Number: None

PATIENT
  Age: 53 Year
  Sex: Female
  Weight: 62 kg

DRUGS (5)
  1. TRASTUZUMAB [Suspect]
     Active Substance: TRASTUZUMAB
     Indication: Colon cancer
     Dosage: 240 MILLIGRAM, QD, IV DRIP
     Route: 042
     Dates: start: 20250711, end: 20250711
  2. IRINOTECAN HYDROCHLORIDE [Suspect]
     Active Substance: IRINOTECAN HYDROCHLORIDE
     Indication: Colon cancer
     Dosage: 200 MILLIGRAM, QD, IV DRIP
     Route: 042
     Dates: start: 20250711, end: 20250711
  3. OXALIPLATIN [Suspect]
     Active Substance: OXALIPLATIN
     Indication: Colon cancer
     Dosage: 100 MILLIGRAM, QD, IV DRIP
     Route: 042
     Dates: start: 20250711, end: 20250711
  4. FLUOROURACIL [Suspect]
     Active Substance: FLUOROURACIL
     Indication: Colon cancer
     Dosage: 3.5 GRAM, QD
     Route: 042
     Dates: start: 20250711, end: 20250712
  5. BEVACIZUMAB [Concomitant]
     Active Substance: BEVACIZUMAB
     Indication: Colon cancer
     Dosage: 280 MILLIGRAM, Q2W, IV DRIP
     Route: 042
     Dates: start: 20250711, end: 20250711

REACTIONS (2)
  - Product use in unapproved indication [Recovered/Resolved]
  - Myelosuppression [Recovered/Resolved]

NARRATIVE: CASE EVENT DATE: 20250729
